FAERS Safety Report 6827069-9 (Version None)
Quarter: 2010Q3

REPORT INFORMATION
  Report Type: 
  Country: None (occurrence: None)
  Receive Date: 20100709
  Receipt Date: 20100701
  Transmission Date: 20110219
  Serious: Yes (Other)
  Sender: FDA-Public Use
  Company Number: JP-MERCK-1004USA02010

PATIENT
  Age: 67 Year
  Sex: Female

DRUGS (5)
  1. JANUVIA [Suspect]
     Indication: TYPE 2 DIABETES MELLITUS
     Route: 048
     Dates: start: 20100126
  2. METFORMIN HCL [Concomitant]
     Route: 065
     Dates: end: 20100201
  3. ZETIA [Concomitant]
     Route: 048
  4. AMARYL [Concomitant]
     Indication: BLOOD GLUCOSE INCREASED
     Route: 048
     Dates: end: 20100405
  5. AMARYL [Concomitant]
     Route: 048
     Dates: start: 20100406

REACTIONS (1)
  - HYPOGLYCAEMIC COMA [None]
